FAERS Safety Report 7550247-0 (Version None)
Quarter: 2011Q2

REPORT INFORMATION
  Report Type: 
  Country: None (occurrence: None)
  Receive Date: 20110615
  Receipt Date: 20110602
  Transmission Date: 20111010
  Serious: Yes (Other)
  Sender: FDA-Public Use
  Company Number: NL-MYLANLABS-2011S1011426

PATIENT
  Age: 58 Year
  Sex: Female
  Weight: 90 kg

DRUGS (10)
  1. ACETYLSALICYLZUUR CARDIO [Concomitant]
     Indication: PRODUCT USED FOR UNKNOWN INDICATION
     Dosage: 1 X PER DAG
     Route: 048
     Dates: start: 20090120
  2. ALENDRONINEZUUR ACCORD [Concomitant]
     Indication: PRODUCT USED FOR UNKNOWN INDICATION
     Dosage: 1 X P.W 70 MG
     Route: 048
     Dates: start: 20060501
  3. PERSANTIN [Concomitant]
     Indication: PRODUCT USED FOR UNKNOWN INDICATION
     Dosage: 2 X DAAGS
     Route: 048
     Dates: start: 20090120
  4. VENTOLIN HFA [Concomitant]
     Indication: PRODUCT USED FOR UNKNOWN INDICATION
     Dosage: 1 TOT 4 X PER DAG
     Route: 055
     Dates: start: 19990101
  5. CALCICHEW D3 [Concomitant]
     Indication: PRODUCT USED FOR UNKNOWN INDICATION
     Dosage: 1 X PER DAG
     Route: 048
     Dates: start: 20060501
  6. SINGULAIR [Concomitant]
     Indication: PRODUCT USED FOR UNKNOWN INDICATION
     Dosage: 1XPER DAG
     Route: 048
     Dates: start: 19990101
  7. SIMVASTATIN [Suspect]
     Indication: CEREBROVASCULAR ACCIDENT
     Dosage: 1 X DAAGS
     Route: 048
     Dates: start: 20090415, end: 20110405
  8. OMEPRAZOLE [Concomitant]
     Indication: PRODUCT USED FOR UNKNOWN INDICATION
     Dosage: 1 X PER DAG
     Route: 048
     Dates: start: 20090601
  9. DESLORATADINE [Concomitant]
     Indication: PRODUCT USED FOR UNKNOWN INDICATION
     Dosage: 4 X DAAGS
     Route: 048
     Dates: start: 20100501
  10. SERETIDE [Concomitant]
     Indication: PRODUCT USED FOR UNKNOWN INDICATION
     Dosage: 2X PER DAG
     Route: 055
     Dates: start: 19990101

REACTIONS (7)
  - BLOOD GLUCOSE INCREASED [None]
  - MUSCULAR WEAKNESS [None]
  - MUSCLE SPASMS [None]
  - LIVER FUNCTION TEST ABNORMAL [None]
  - BLOOD UREA INCREASED [None]
  - MYALGIA [None]
  - BLOOD CREATINE PHOSPHOKINASE INCREASED [None]
